FAERS Safety Report 16708218 (Version 8)
Quarter: 2020Q4

REPORT INFORMATION
  Report Type: Report from Study
  Country: None (occurrence: US)
  Receive Date: 20190816
  Receipt Date: 20201104
  Transmission Date: 20210113
  Serious: Yes (Other)
  Sender: FDA-Public Use
  Company Number: US-ABBVIE-19K-163-2849509-00

PATIENT
  Age: 80 Year
  Sex: Female

DRUGS (2)
  1. HUMIRA [Suspect]
     Active Substance: ADALIMUMAB
     Indication: RHEUMATOID ARTHRITIS
     Route: 058
     Dates: end: 202003
  2. HUMIRA [Suspect]
     Active Substance: ADALIMUMAB
     Indication: ANKYLOSING SPONDYLITIS
     Route: 058
     Dates: start: 2020

REACTIONS (29)
  - Fibrin D dimer increased [Recovered/Resolved]
  - Blister [Recovered/Resolved]
  - Conjunctivitis [Unknown]
  - Musculoskeletal pain [Not Recovered/Not Resolved]
  - Renal failure [Not Recovered/Not Resolved]
  - Bone disorder [Not Recovered/Not Resolved]
  - Pain [Recovered/Resolved]
  - Arthralgia [Recovering/Resolving]
  - Knee arthroplasty [Unknown]
  - Fracture blisters [Recovering/Resolving]
  - Swelling [Recovering/Resolving]
  - Arthralgia [Unknown]
  - Ankle fracture [Recovered/Resolved]
  - Osteoarthritis [Recovered/Resolved]
  - Bone density decreased [Recovered/Resolved]
  - Lower limb fracture [Recovering/Resolving]
  - Eye infection [Unknown]
  - Diverticulitis [Recovered/Resolved]
  - Injection site pain [Unknown]
  - Foot fracture [Recovering/Resolving]
  - Pain of skin [Not Recovered/Not Resolved]
  - Fall [Unknown]
  - Myalgia [Unknown]
  - Joint range of motion decreased [Unknown]
  - Thrombosis [Unknown]
  - Injection site pruritus [Unknown]
  - Rheumatoid arthritis [Unknown]
  - Hyperkeratosis [Not Recovered/Not Resolved]
  - Hepatic enzyme increased [Recovered/Resolved]

NARRATIVE: CASE EVENT DATE: 2011
